FAERS Safety Report 6133272-6 (Version None)
Quarter: 2009Q1

REPORT INFORMATION
  Report Type: 
  Country: None (occurrence: None)
  Receive Date: 20090326
  Receipt Date: 20090320
  Transmission Date: 20090719
  Serious: Yes (Other)
  Sender: FDA-Public Use
  Company Number: DE-ROCHE-623250

PATIENT
  Sex: Male

DRUGS (1)
  1. ROFERON-A [Suspect]
     Indication: MALIGNANT MELANOMA
     Route: 065
     Dates: start: 20080901

REACTIONS (1)
  - PULMONARY FIBROSIS [None]
